FAERS Safety Report 21406273 (Version 1)
Quarter: 2022Q4

REPORT INFORMATION
  Report Type: Spontaneous
  Country: ES (occurrence: ES)
  Receive Date: 20221004
  Receipt Date: 20221004
  Transmission Date: 20230113
  Serious: Yes (Life-Threatening, Hospitalization)
  Sender: FDA-Public Use
  Company Number: None

PATIENT
  Age: 59 Year
  Sex: Female

DRUGS (6)
  1. MIRTAZAPINE [Interacting]
     Active Substance: MIRTAZAPINE
     Indication: Psychotic disorder
     Dosage: 30 MILLIGRAM, QD
     Route: 048
     Dates: start: 20210701, end: 20220818
  2. ABILIFY [Interacting]
     Active Substance: ARIPIPRAZOLE
     Indication: Psychotic disorder
     Dosage: 5 MILLIGRAM, QD, 28 TABLETS
     Route: 048
     Dates: start: 20211101, end: 20220816
  3. ESCITALOPRAM [Interacting]
     Active Substance: ESCITALOPRAM OXALATE
     Indication: Mixed anxiety and depressive disorder
     Dosage: 10 MILLIGRAM, QD
     Route: 048
     Dates: start: 20220501, end: 20220816
  4. DIAZEPAM [Concomitant]
     Active Substance: DIAZEPAM
     Indication: Mixed anxiety and depressive disorder
     Dosage: 30 MILLIGRAM, QD
     Route: 048
     Dates: start: 20211101, end: 20220816
  5. ARDINE [Concomitant]
     Indication: Otitis media
     Dosage: 500 MILLIGRAM, Q8H, POWDER FOR ORAL SUSPENSION IN SACHETS, 20 SACHETS
     Route: 048
     Dates: start: 20220815, end: 20220816
  6. LORAZEPAM [Concomitant]
     Active Substance: LORAZEPAM
     Indication: Mixed anxiety and depressive disorder
     Dosage: 5 MILLIGRAM, QD
     Route: 048
     Dates: start: 20210701, end: 20220816

REACTIONS (4)
  - Acute respiratory failure [Recovered/Resolved]
  - Rhabdomyolysis [Recovering/Resolving]
  - Acute kidney injury [Recovering/Resolving]
  - Lactic acidosis [Recovered/Resolved]

NARRATIVE: CASE EVENT DATE: 20220816
